FAERS Safety Report 26137410 (Version 1)
Quarter: 2025Q4

REPORT INFORMATION
  Report Type: Spontaneous
  Country: US (occurrence: US)
  Receive Date: 20251209
  Receipt Date: 20251209
  Transmission Date: 20260118
  Serious: Yes (Other)
  Sender: PURDUE
  Company Number: US-NAPPMUNDI-GBR-2025-0131135

PATIENT
  Age: 21 Year
  Sex: Female

DRUGS (2)
  1. METHYLPHENIDATE HYDROCHLORIDE [Suspect]
     Active Substance: METHYLPHENIDATE HYDROCHLORIDE
     Indication: Narcolepsy
     Dosage: 5 MILLIGRAM, PRN
     Route: 065
  2. SODIUM OXYBATE [Suspect]
     Active Substance: SODIUM OXYBATE
     Indication: Narcolepsy
     Dosage: (3 MG AT 11 PM, 1 AM, AND 4 AM) ADJUSTED TO TWO DOSES BEFORE 2 AM (9 MG TOTAL)
     Route: 065

REACTIONS (2)
  - Obstructive sleep apnoea syndrome [Recovering/Resolving]
  - Off label use [Unknown]
